FAERS Safety Report 24437471 (Version 1)
Quarter: 2024Q4

REPORT INFORMATION
  Report Type: Spontaneous
  Country: US (occurrence: None)
  Receive Date: 20241011
  Receipt Date: 20241011
  Transmission Date: 20250115
  Serious: Yes (Disabling)
  Sender: Public
  Company Number: None

PATIENT
  Age: 71 Year
  Sex: Female
  Weight: 85.5 kg

DRUGS (5)
  1. REPATHA [Suspect]
     Active Substance: EVOLOCUMAB
     Indication: Blood cholesterol increased
     Dosage: OTHER QUANTITY : 1 INJECTION(S);?OTHER FREQUENCY : 1 EVERY 2 WEEKS;?OTHER ROUTE : INJECTED UNDER SKI
     Route: 050
     Dates: start: 20240709, end: 20240921
  2. METFORMIN [Concomitant]
     Active Substance: METFORMIN HYDROCHLORIDE
  3. PRILOSEC [Concomitant]
     Active Substance: OMEPRAZOLE MAGNESIUM
  4. Centrum multivitamin [Concomitant]
  5. VITAMIN D [Concomitant]
     Active Substance: VITAMIN D NOS

REACTIONS (14)
  - Muscle spasms [None]
  - Headache [None]
  - Brain fog [None]
  - Arthralgia [None]
  - Flatulence [None]
  - Abdominal distension [None]
  - Gastrointestinal disorder [None]
  - Pain [None]
  - Diarrhoea [None]
  - Vision blurred [None]
  - Cough [None]
  - Sleep disorder [None]
  - Fatigue [None]
  - Illness [None]

NARRATIVE: CASE EVENT DATE: 20240921
